FAERS Safety Report 8850200 (Version 1)
Quarter: 2012Q4

REPORT INFORMATION
  Report Type: 
  Country: CZ (occurrence: CZ)
  Receive Date: 20121019
  Receipt Date: 20121019
  Transmission Date: 20130627
  Serious: Yes (Hospitalization, Disabling, Other)
  Sender: FDA-Public Use
  Company Number: CZ-PFIZER INC-2012258919

PATIENT
  Sex: Male

DRUGS (3)
  1. AMIODARONE HCL [Suspect]
     Dosage: UNK
  2. METHYLPREDNISOLONE [Suspect]
     Indication: INTERSTITIAL LUNG DISEASE
     Dosage: 100 mg, daily
  3. METHYLPREDNISOLONE [Suspect]
     Dosage: 1-2 mg/kg, Daily

REACTIONS (3)
  - Interstitial lung disease [Recovered/Resolved]
  - Respiratory failure [Recovered/Resolved]
  - Cytomegalovirus infection [Unknown]
